FAERS Safety Report 21545330 (Version 1)
Quarter: 2022Q4

REPORT INFORMATION
  Report Type: Spontaneous
  Country: EG (occurrence: EG)
  Receive Date: 20221103
  Receipt Date: 20221103
  Transmission Date: 20230113
  Serious: Yes (Other)
  Sender: FDA-Public Use
  Company Number: EG-NOVOPROD-972811

PATIENT
  Age: 67 Year
  Sex: Female
  Weight: 80 kg

DRUGS (8)
  1. INSULIN HUMAN [Suspect]
     Active Substance: INSULIN HUMAN
     Dosage: 54 IU, QD (30 U AT MORNING, 24 U AT NIGHT)
     Route: 058
  2. INSULIN HUMAN [Suspect]
     Active Substance: INSULIN HUMAN
     Indication: Type 2 diabetes mellitus
     Dosage: 52 IU, QD (28 U AT MORNING, 24 U AT NIGHT)
     Route: 058
  3. FENOFIBRATE [Concomitant]
     Active Substance: FENOFIBRATE
     Indication: Hypercholesterolaemia
     Dosage: STARTED FROM 30 YEARS WITH DOSE 1 TAB/DAY
     Route: 048
  4. CRESTOR [Concomitant]
     Active Substance: ROSUVASTATIN CALCIUM
     Indication: Hypercholesterolaemia
     Dosage: STARTED FROM 30 YEARS
  5. ATACAND [Concomitant]
     Active Substance: CANDESARTAN CILEXETIL
     Indication: Hypertension
     Dosage: STARTED FROM 30 YEARS WITH DOSE 1TAB/DAY
     Route: 048
  6. BISOPROLOL FUMARATE [Concomitant]
     Active Substance: BISOPROLOL FUMARATE
     Indication: Hypertension
     Dosage: 5 MG, QD (STARTED FROM 30 YEARS)
     Route: 048
  7. PLAVIX [Concomitant]
     Active Substance: CLOPIDOGREL BISULFATE
     Indication: Anticoagulant therapy
     Dosage: STARTED FROM 30 YEARS WITH DOSE 1TAB/DAY
     Route: 048
  8. SUGARLO PLUS [Concomitant]
     Indication: Type 2 diabetes mellitus
     Dosage: STARTED FROM 9 MONTHS AGO WITH DOSE 2 TAB/DAY
     Route: 048

REACTIONS (5)
  - Cataract [Recovered/Resolved]
  - Macular oedema [Unknown]
  - Cholecystectomy [Unknown]
  - Hyperglycaemia [Not Recovered/Not Resolved]
  - Hypoglycaemia [Not Recovered/Not Resolved]
